FAERS Safety Report 4909907-X (Version None)
Quarter: 2006Q1

REPORT INFORMATION
  Report Type: 
  Country: None (occurrence: None)
  Receive Date: 20060209
  Receipt Date: 20060126
  Transmission Date: 20060701
  Serious: Yes (Other)
  Sender: FDA-Public Use
  Company Number: 430018P04USA

PATIENT
  Age: 39 Year
  Sex: Male
  Weight: 72.57 kg

DRUGS (21)
  1. NOVANTRONE [Suspect]
     Indication: MULTIPLE SCLEROSIS
     Dosage: SEE IMAGE
     Route: 042
     Dates: start: 20020530, end: 20020530
  2. NOVANTRONE [Suspect]
     Indication: MULTIPLE SCLEROSIS
     Dosage: SEE IMAGE
     Route: 042
     Dates: start: 20020813, end: 20020813
  3. NOVANTRONE [Suspect]
     Indication: MULTIPLE SCLEROSIS
     Dosage: SEE IMAGE
     Route: 042
     Dates: start: 20021112, end: 20021112
  4. NOVANTRONE [Suspect]
     Indication: MULTIPLE SCLEROSIS
     Dosage: SEE IMAGE
     Route: 042
     Dates: start: 20030227, end: 20030227
  5. NOVANTRONE [Suspect]
     Indication: MULTIPLE SCLEROSIS
     Dosage: SEE IMAGE
     Route: 042
     Dates: start: 20030515, end: 20030515
  6. NOVANTRONE [Suspect]
     Indication: MULTIPLE SCLEROSIS
     Dosage: SEE IMAGE
     Route: 042
     Dates: start: 20030814, end: 20030814
  7. NOVANTRONE [Suspect]
     Indication: MULTIPLE SCLEROSIS
     Dosage: SEE IMAGE
     Route: 042
     Dates: start: 20031116, end: 20031116
  8. NOVANTRONE [Suspect]
     Indication: MULTIPLE SCLEROSIS
     Dosage: SEE IMAGE
     Route: 042
     Dates: start: 20040205, end: 20040205
  9. NOVANTRONE [Suspect]
     Indication: MULTIPLE SCLEROSIS
     Dosage: SEE IMAGE
     Route: 042
     Dates: start: 20040507, end: 20040507
  10. NOVANTRONE [Suspect]
     Indication: MULTIPLE SCLEROSIS
     Dosage: SEE IMAGE
     Route: 042
     Dates: start: 20040805, end: 20040805
  11. POTASSIUM /00031401/ [Concomitant]
  12. FUROSEMIDE /00032601/ [Concomitant]
  13. VENLAFAXINE HCL [Concomitant]
  14. OXYBUTYNIN /00538901/ [Concomitant]
  15. NITROFURANTOIN [Concomitant]
  16. AMANTADINE /00055901/ [Concomitant]
  17. CETIRIZINE HYDROCHLORIDE [Concomitant]
  18. ESCITALOPRAM OXALATE [Concomitant]
  19. ATORVASTATIN CALCIUM [Concomitant]
  20. ALLIUM SATIVUM [Concomitant]
  21. PROCTOFIBE [Concomitant]

REACTIONS (5)
  - BUNDLE BRANCH BLOCK LEFT [None]
  - BUNDLE BRANCH BLOCK RIGHT [None]
  - DYSPNOEA EXERTIONAL [None]
  - EJECTION FRACTION DECREASED [None]
  - VENTRICULAR HYPERTROPHY [None]
